FAERS Safety Report 9463981 (Version 1)
Quarter: 2013Q3

REPORT INFORMATION
  Report Type: Spontaneous
  Country: US (occurrence: US)
  Receive Date: 20130819
  Receipt Date: 20130819
  Transmission Date: 20140515
  Serious: No
  Sender: FDA-Public Use
  Company Number: US-BRISTOL-MYERS SQUIBB COMPANY-17088469

PATIENT
  Age: 63 Year
  Sex: Male

DRUGS (5)
  1. REYATAZ [Suspect]
  2. NORVIR [Suspect]
  3. PRAVASTATIN SODIUM [Concomitant]
  4. VIRAMUNE [Concomitant]
  5. TRUVADA [Concomitant]

REACTIONS (1)
  - Dyspepsia [Unknown]
